FAERS Safety Report 26181603 (Version 1)
Quarter: 2025Q4

REPORT INFORMATION
  Report Type: Spontaneous
  Country: US (occurrence: US)
  Receive Date: 20251221
  Receipt Date: 20251221
  Transmission Date: 20260118
  Serious: No
  Sender: MERCK SHARP & DOHME LLC
  Company Number: US-009507513-2361560

PATIENT
  Sex: Female
  Weight: 99.79 kg

DRUGS (8)
  1. LENVATINIB [Suspect]
     Active Substance: LENVATINIB
     Indication: Uterine cancer
     Route: 048
  2. KEYTRUDA [Suspect]
     Active Substance: PEMBROLIZUMAB
     Indication: Uterine cancer
  3. CINACALCET [Concomitant]
     Active Substance: CINACALCET
  4. LEVOTHYROXINE SODIUM [Concomitant]
     Active Substance: LEVOTHYROXINE SODIUM
  5. ONDANSETRON [Concomitant]
     Active Substance: ONDANSETRON
  6. LOSARTAN [Concomitant]
     Active Substance: LOSARTAN
  7. CARVEDILOL [Concomitant]
     Active Substance: CARVEDILOL
  8. CHLORTHALIDONE [Concomitant]
     Active Substance: CHLORTHALIDONE

REACTIONS (5)
  - Arthralgia [Unknown]
  - Oral pain [Unknown]
  - Fungal infection [Unknown]
  - Blood calcium increased [Unknown]
  - Pain [Unknown]
